FAERS Safety Report 20300246 (Version 5)
Quarter: 2022Q1

REPORT INFORMATION
  Report Type: Report from Study
  Country: DE (occurrence: DE)
  Receive Date: 20220105
  Receipt Date: 20220303
  Transmission Date: 20220423
  Serious: Yes (Hospitalization, Other)
  Sender: FDA-Public Use
  Company Number: DE-TAKEDA-2022TUS000469

PATIENT
  Age: 62 Year
  Sex: Female

DRUGS (28)
  1. TEDUGLUTIDE [Suspect]
     Active Substance: TEDUGLUTIDE
     Indication: Short-bowel syndrome
     Dosage: 3.0 MILLIGRAM, QD
     Route: 065
     Dates: start: 20201112, end: 20201208
  2. TEDUGLUTIDE [Suspect]
     Active Substance: TEDUGLUTIDE
     Indication: Short-bowel syndrome
     Dosage: 3.0 MILLIGRAM, QD
     Route: 065
     Dates: start: 20201112, end: 20201208
  3. TEDUGLUTIDE [Suspect]
     Active Substance: TEDUGLUTIDE
     Indication: Short-bowel syndrome
     Dosage: 3.0 MILLIGRAM, QD
     Route: 065
     Dates: start: 20201112, end: 20201208
  4. TEDUGLUTIDE [Suspect]
     Active Substance: TEDUGLUTIDE
     Indication: Short-bowel syndrome
     Dosage: 3.0 MILLIGRAM, QD
     Route: 065
     Dates: start: 20201112, end: 20201208
  5. TEDUGLUTIDE [Suspect]
     Active Substance: TEDUGLUTIDE
     Dosage: 2 MILLIGRAM,QD
     Route: 065
     Dates: start: 20201209, end: 20201215
  6. TEDUGLUTIDE [Suspect]
     Active Substance: TEDUGLUTIDE
     Dosage: 2 MILLIGRAM,QD
     Route: 065
     Dates: start: 20201209, end: 20201215
  7. TEDUGLUTIDE [Suspect]
     Active Substance: TEDUGLUTIDE
     Dosage: 2 MILLIGRAM,QD
     Route: 065
     Dates: start: 20201209, end: 20201215
  8. TEDUGLUTIDE [Suspect]
     Active Substance: TEDUGLUTIDE
     Dosage: 2 MILLIGRAM,QD
     Route: 065
     Dates: start: 20201209, end: 20201215
  9. TEDUGLUTIDE [Suspect]
     Active Substance: TEDUGLUTIDE
     Dosage: 2 .4MILLIGRAM,QD
     Route: 065
     Dates: start: 20201216, end: 20210922
  10. TEDUGLUTIDE [Suspect]
     Active Substance: TEDUGLUTIDE
     Dosage: 2 .4MILLIGRAM,QD
     Route: 065
     Dates: start: 20201216, end: 20210922
  11. TEDUGLUTIDE [Suspect]
     Active Substance: TEDUGLUTIDE
     Dosage: 2 .4MILLIGRAM,QD
     Route: 065
     Dates: start: 20201216, end: 20210922
  12. TEDUGLUTIDE [Suspect]
     Active Substance: TEDUGLUTIDE
     Dosage: 2 .4MILLIGRAM,QD
     Route: 065
     Dates: start: 20201216, end: 20210922
  13. TEDUGLUTIDE [Suspect]
     Active Substance: TEDUGLUTIDE
     Dosage: 2 MILLIGRAM,QD
     Route: 065
     Dates: start: 20210923, end: 20220101
  14. TEDUGLUTIDE [Suspect]
     Active Substance: TEDUGLUTIDE
     Dosage: 2 MILLIGRAM,QD
     Route: 065
     Dates: start: 20210923, end: 20220101
  15. TEDUGLUTIDE [Suspect]
     Active Substance: TEDUGLUTIDE
     Dosage: 2 MILLIGRAM,QD
     Route: 065
     Dates: start: 20210923, end: 20220101
  16. TEDUGLUTIDE [Suspect]
     Active Substance: TEDUGLUTIDE
     Dosage: 2 MILLIGRAM,QD
     Route: 065
     Dates: start: 20210923, end: 20220101
  17. TEDUGLUTIDE [Suspect]
     Active Substance: TEDUGLUTIDE
     Dosage: 2 MILLIGRAM, QOD
     Route: 065
     Dates: start: 20220107, end: 20220217
  18. TEDUGLUTIDE [Suspect]
     Active Substance: TEDUGLUTIDE
     Dosage: 2 MILLIGRAM, QOD
     Route: 065
     Dates: start: 20220107, end: 20220217
  19. TEDUGLUTIDE [Suspect]
     Active Substance: TEDUGLUTIDE
     Dosage: 2 MILLIGRAM, QOD
     Route: 065
     Dates: start: 20220107, end: 20220217
  20. TEDUGLUTIDE [Suspect]
     Active Substance: TEDUGLUTIDE
     Dosage: 2 MILLIGRAM, QOD
     Route: 065
     Dates: start: 20220107, end: 20220217
  21. TEDUGLUTIDE [Suspect]
     Active Substance: TEDUGLUTIDE
     Dosage: 2 MILLIGRAM, QOD
     Route: 065
     Dates: start: 20220218
  22. TEDUGLUTIDE [Suspect]
     Active Substance: TEDUGLUTIDE
     Dosage: 2 MILLIGRAM, QOD
     Route: 065
     Dates: start: 20220218
  23. TEDUGLUTIDE [Suspect]
     Active Substance: TEDUGLUTIDE
     Dosage: 2 MILLIGRAM, QOD
     Route: 065
     Dates: start: 20220218
  24. TEDUGLUTIDE [Suspect]
     Active Substance: TEDUGLUTIDE
     Dosage: 2 MILLIGRAM, QOD
     Route: 065
     Dates: start: 20220218
  25. SIMETICON [Concomitant]
     Indication: Flatulence
     Dosage: 44 GTT DROPS
     Route: 048
     Dates: start: 202110
  26. AMOXIL [Concomitant]
     Active Substance: AMOXICILLIN
     Indication: Angina pectoris
     Dosage: 750 MILLIGRAM, TID
     Route: 048
     Dates: start: 20211102
  27. Selenase [Concomitant]
     Indication: Product used for unknown indication
     Dosage: 100 MICROGRAM, QOD
     Route: 048
     Dates: start: 20210608
  28. DIMETHICONE [Concomitant]
     Active Substance: DIMETHICONE
     Indication: Abdominal distension
     Dosage: 2 DOSAGE FORM
     Route: 060
     Dates: start: 202103

REACTIONS (1)
  - Ileus [Recovered/Resolved]

NARRATIVE: CASE EVENT DATE: 20211227
